FAERS Safety Report 4938301-0 (Version None)
Quarter: 2006Q1

REPORT INFORMATION
  Report Type: 
  Country: None (occurrence: None)
  Receive Date: 20060309
  Receipt Date: 20041123
  Transmission Date: 20060701
  Serious: Yes (Death)
  Sender: FDA-Public Use
  Company Number: GB-GLAXOSMITHKLINE-B0357908A

PATIENT
  Age: 78 Year
  Sex: Male
  Weight: 50.9 kg

DRUGS (10)
  1. AVANDIA [Suspect]
     Dosage: 4MG UNKNOWN
     Route: 048
     Dates: start: 20041011, end: 20041108
  2. ALLOPURINOL [Concomitant]
     Indication: GOUT
     Dosage: 300MG PER DAY
     Route: 048
     Dates: start: 19890101, end: 20041108
  3. ASPIRIN [Concomitant]
     Dosage: 75NG PER DAY
     Route: 048
     Dates: start: 19990101, end: 20041108
  4. DIGOXIN [Concomitant]
     Indication: SUPRAVENTRICULAR TACHYCARDIA
     Dosage: 250MG PER DAY
     Route: 048
     Dates: start: 19990705, end: 20041108
  5. AMIODARONE [Concomitant]
     Indication: SUPRAVENTRICULAR TACHYCARDIA
     Dosage: 200MG PER DAY
     Route: 048
     Dates: start: 19990705, end: 20041108
  6. PNEUMOVAX II [Concomitant]
     Dosage: .5ML SINGLE DOSE
     Route: 065
     Dates: start: 20041001
  7. DOXAZOSIN MESYLATE [Concomitant]
     Indication: HYPERTENSION
     Dosage: 4MG PER DAY
     Route: 065
  8. ROSUVASTATIN [Concomitant]
     Indication: BLOOD CHOLESTEROL INCREASED
     Dosage: 20MG PER DAY
     Route: 065
  9. BENDROFLUMETHIAZIDE [Concomitant]
     Indication: HYPERTENSION
     Dosage: 2.5MG PER DAY
     Route: 065
  10. INFLUENZA VIRUS VACCINE [Concomitant]
     Dosage: .5ML SINGLE DOSE

REACTIONS (2)
  - MYOCARDIAL INFARCTION [None]
  - SUDDEN DEATH [None]
